FAERS Safety Report 5084787-3 (Version None)
Quarter: 2006Q3

REPORT INFORMATION
  Report Type: 
  Country: None (occurrence: None)
  Receive Date: 20060815
  Receipt Date: 20060803
  Transmission Date: 20061208
  Serious: Yes (Other)
  Sender: FDA-Public Use
  Company Number: GB200608000857

PATIENT
  Age: 58 Year
  Sex: Female

DRUGS (4)
  1. ZYPREXA [Suspect]
     Indication: SCHIZOPHRENIA
     Dosage: SEE IMAGE
     Route: 048
  2. BENDROFLUAZIDE (BENDROFLUMETHIAZIDE) [Concomitant]
  3. CO-CODAMOL (CODEINE PHOSPHATE, PARACETAMOL) [Concomitant]
  4. LITHIUM CARBONATE [Concomitant]

REACTIONS (2)
  - DEEP VEIN THROMBOSIS [None]
  - PRESCRIBED OVERDOSE [None]
